FAERS Safety Report 4540588-3 (Version None)
Quarter: 2004Q4

REPORT INFORMATION
  Report Type: 
  Country: None (occurrence: None)
  Receive Date: 20041228
  Receipt Date: 20041228
  Transmission Date: 20050328
  Serious: Yes (Other)
  Sender: FDA-Public Use
  Company Number: None

PATIENT
  Age: 57 Year
  Sex: Female
  Weight: 90.7194 kg

DRUGS (3)
  1. TRIAMCINOLONE ACETONIDE [Suspect]
     Indication: SKIN IRRITATION
     Dosage: APPLY 2-3X DAILY
     Dates: start: 20041206, end: 20041223
  2. DIOVAN [Concomitant]
  3. HYDROCHLOROTHIAZIDE [Concomitant]

REACTIONS (4)
  - APPLICATION SITE BLEEDING [None]
  - APPLICATION SITE VESICLES [None]
  - BURNS SECOND DEGREE [None]
  - SELF-MEDICATION [None]
